FAERS Safety Report 24258206 (Version 1)
Quarter: 2024Q3

REPORT INFORMATION
  Report Type: Spontaneous
  Country: JP (occurrence: JP)
  Receive Date: 20240828
  Receipt Date: 20240828
  Transmission Date: 20241016
  Serious: Yes (Hospitalization, Other)
  Sender: EMD SERONO INC
  Company Number: JP-Merck Healthcare KGaA-2024044976

PATIENT
  Age: 76 Year
  Sex: Female
  Weight: 50 kg

DRUGS (5)
  1. METGLUCO [Suspect]
     Active Substance: METFORMIN HYDROCHLORIDE
     Indication: Diabetes mellitus
     Route: 048
     Dates: start: 20141212
  2. AMLODIPINE BESYLATE\IRBESARTAN [Suspect]
     Active Substance: AMLODIPINE BESYLATE\IRBESARTAN
     Indication: Hypertension
     Route: 048
     Dates: start: 20150724
  3. GLIMEPIRIDE [Suspect]
     Active Substance: GLIMEPIRIDE
     Indication: Diabetes mellitus
     Dosage: ONGOING
     Dates: start: 20150123
  4. LINAGLIPTIN [Suspect]
     Active Substance: LINAGLIPTIN
     Indication: Product used for unknown indication
     Dosage: ONGOING
     Dates: start: 20140912
  5. LAFUTIDINE [Concomitant]
     Active Substance: LAFUTIDINE
     Indication: Gastrointestinal disorder prophylaxis
     Dosage: ONGOING
     Dates: start: 20240730

REACTIONS (6)
  - Myelofibrosis [Unknown]
  - COVID-19 [Recovered/Resolved]
  - Glaucoma [Unknown]
  - Hypertension [Unknown]
  - Hyperuricaemia [Unknown]
  - Osteoporosis [Unknown]

NARRATIVE: CASE EVENT DATE: 20240117
